FAERS Safety Report 4892355-9 (Version None)
Quarter: 2006Q1

REPORT INFORMATION
  Report Type: 
  Country: None (occurrence: None)
  Receive Date: 20060126
  Receipt Date: 20060119
  Transmission Date: 20060701
  Serious: Yes (Other)
  Sender: FDA-Public Use
  Company Number: GB-GLAXOSMITHKLINE-B0407334A

PATIENT
  Age: 85 Year
  Sex: Female

DRUGS (8)
  1. AVANDIA [Suspect]
     Dosage: 4MG PER DAY
     Route: 048
     Dates: end: 20060101
  2. TOLBUTAMIDE [Concomitant]
     Dosage: 2G PER DAY
     Route: 048
  3. FRUSEMIDE [Concomitant]
     Dosage: 40MG PER DAY
     Route: 048
  4. FERROUS SULFATE TAB [Concomitant]
     Dosage: 200MG PER DAY
     Route: 048
  5. PERINDOPRIL [Concomitant]
     Dosage: 2MG PER DAY
     Route: 048
  6. WARFARIN [Concomitant]
     Route: 048
  7. OMEPRAZOLE [Concomitant]
     Dosage: 20MG PER DAY
     Route: 048
  8. SALBUTAMOL [Concomitant]

REACTIONS (4)
  - ASTHENOPIA [None]
  - DIZZINESS [None]
  - EYE SWELLING [None]
  - EYELID FUNCTION DISORDER [None]
